FAERS Safety Report 7252003-X (Version None)
Quarter: 2011Q1

REPORT INFORMATION
  Report Type: 
  Country: None (occurrence: None)
  Receive Date: 20110128
  Receipt Date: 20100223
  Transmission Date: 20110831
  Serious: Yes (Other)
  Sender: FDA-Public Use
  Company Number: US-ABBOTT-06P-163-0348183-00

PATIENT
  Sex: Female
  Weight: 38.136 kg

DRUGS (8)
  1. HUMIRA [Suspect]
     Indication: RHEUMATOID ARTHRITIS
     Route: 058
     Dates: start: 20080101, end: 20091001
  2. HUMIRA [Suspect]
     Indication: RHEUMATOID ARTHRITIS
     Route: 058
     Dates: start: 20050101, end: 20080101
  3. GLUCOSAMINE [Concomitant]
     Indication: ARTHRITIS
  4. LEFLUNOMIDE [Suspect]
     Indication: RHEUMATOID ARTHRITIS
     Route: 048
     Dates: start: 20080801
  5. TYLENOL EXTRA-STRENGTH [Concomitant]
     Indication: PAIN
  6. KENALOG [Suspect]
     Indication: RHEUMATOID ARTHRITIS
     Route: 014
  7. METHOTREXATE [Suspect]
     Indication: RHEUMATOID ARTHRITIS
  8. FOLIC ACID [Concomitant]
     Indication: ARTHRITIS

REACTIONS (12)
  - SPIDER VEIN [None]
  - DIARRHOEA [None]
  - VARICOSE VEIN [None]
  - EAR INFECTION [None]
  - LYMPHADENOPATHY [None]
  - GASTRIC DISORDER [None]
  - VEIN DISORDER [None]
  - WHITE BLOOD CELL COUNT INCREASED [None]
  - CATARACT [None]
  - VISUAL ACUITY REDUCED [None]
  - WEIGHT DECREASED [None]
  - PHARYNGITIS STREPTOCOCCAL [None]
